FAERS Safety Report 9801733 (Version 2)
Quarter: 2014Q3

REPORT INFORMATION
  Report Type: Spontaneous
  Country: US (occurrence: US)
  Receive Date: 20140107
  Receipt Date: 20140808
  Transmission Date: 20150326
  Serious: Yes (Hospitalization)
  Sender: FDA-Public Use
  Company Number: US-009507513-1401USA001967

PATIENT
  Sex: Female
  Weight: 165.53 kg

DRUGS (1)
  1. NUVARING [Suspect]
     Active Substance: ETHINYL ESTRADIOL\ETONOGESTREL
     Indication: CONTRACEPTION
     Dosage: UNK
     Route: 067
     Dates: start: 2012

REACTIONS (9)
  - Diarrhoea [Unknown]
  - Skin lesion [Unknown]
  - Pain in extremity [Unknown]
  - Blood pressure increased [Unknown]
  - Erythema [Unknown]
  - Limb injury [Unknown]
  - Decreased appetite [Unknown]
  - Nausea [Unknown]
  - Deep vein thrombosis [Unknown]

NARRATIVE: CASE EVENT DATE: 20120312
